FAERS Safety Report 17534928 (Version 1)
Quarter: 2020Q1

REPORT INFORMATION
  Report Type: Report from Study
  Country: None (occurrence: US)
  Receive Date: 20200313
  Receipt Date: 20200313
  Transmission Date: 20200409
  Serious: Yes (Hospitalization)
  Sender: FDA-Public Use
  Company Number: US-ABBVIE-20K-163-3316172-00

PATIENT
  Age: 41 Year
  Sex: Female

DRUGS (2)
  1. HUMIRA [Suspect]
     Active Substance: ADALIMUMAB
     Indication: RHEUMATOID ARTHRITIS
     Route: 058
     Dates: start: 20190823, end: 202001
  2. HUMIRA [Suspect]
     Active Substance: ADALIMUMAB
     Route: 058
     Dates: start: 202001

REACTIONS (12)
  - Pericarditis [Unknown]
  - Joint swelling [Unknown]
  - Pain [Unknown]
  - Headache [Recovering/Resolving]
  - Haemoglobin decreased [Unknown]
  - Coronary artery dissection [Unknown]
  - Arthralgia [Unknown]
  - Dizziness [Recovering/Resolving]
  - Post procedural swelling [Recovered/Resolved]
  - Joint stiffness [Unknown]
  - Visual impairment [Recovered/Resolved]
  - Discomfort [Unknown]

NARRATIVE: CASE EVENT DATE: 201908
